FAERS Safety Report 8238589-7 (Version None)
Quarter: 2012Q1

REPORT INFORMATION
  Report Type: 
  Country: None (occurrence: None)
  Receive Date: 20120327
  Receipt Date: 20120320
  Transmission Date: 20120608
  Serious: Yes (Hospitalization)
  Sender: FDA-Public Use
  Company Number: DK-PFIZER INC-2011281336

PATIENT
  Age: 62 Year
  Sex: Female
  Weight: 82.8 kg

DRUGS (12)
  1. DOXORUBICIN HCL [Suspect]
     Indication: DIFFUSE LARGE B-CELL LYMPHOMA
     Dosage: 100 MG, UNK
     Route: 042
     Dates: start: 20111026
  2. VALACYCLOVIR HYDROCHLORIDE [Concomitant]
     Indication: PROPHYLAXIS
     Dosage: 400 MG, UNK
     Dates: start: 20111021, end: 20111104
  3. RITUXIMAB [Suspect]
     Indication: DIFFUSE LARGE B-CELL LYMPHOMA
     Dosage: 800 MG, UNK
     Route: 042
     Dates: start: 20111026
  4. NEUPOGEN [Concomitant]
     Indication: DIFFUSE LARGE B-CELL LYMPHOMA
     Dosage: 6 MG, UNK
     Dates: start: 20111027
  5. FLUCONAZOLE [Concomitant]
     Indication: INFECTION
     Dosage: 100 MG, UNK
     Route: 048
     Dates: start: 20111118
  6. DOXORUBICIN HCL [Suspect]
     Dosage: 100 MG, UNK
     Dates: start: 20111111
  7. SULFAMETHOXAZOLE + TRIMETHOPRIM [Concomitant]
     Indication: PROPHYLAXIS
     Dosage: 1000 MG, UNK
     Route: 048
     Dates: start: 20111021, end: 20111104
  8. RITUXIMAB [Suspect]
     Dosage: 800 MG, UNK
     Dates: start: 20111118
  9. PREDNISONE TAB [Concomitant]
     Indication: DIFFUSE LARGE B-CELL LYMPHOMA
     Dosage: 100 MG, UNK
     Route: 048
     Dates: start: 20111026
  10. CYCLOPHOSPHAMIDE [Suspect]
     Indication: DIFFUSE LARGE B-CELL LYMPHOMA
     Dosage: 1500 MG, UNK
     Route: 042
     Dates: start: 20111026
  11. NEUPOGEN [Concomitant]
     Dosage: 6 MG, UNK
     Route: 058
     Dates: start: 20111112
  12. VINCRISTINE [Suspect]
     Indication: DIFFUSE LARGE B-CELL LYMPHOMA
     Dosage: 2 MG, UNK
     Route: 042
     Dates: start: 20111026

REACTIONS (3)
  - PNEUMONIA [None]
  - INFECTION [None]
  - PYREXIA [None]
